FAERS Safety Report 7971595-6 (Version None)
Quarter: 2011Q4

REPORT INFORMATION
  Report Type: 
  Country: None (occurrence: None)
  Receive Date: 20111212
  Receipt Date: 20111201
  Transmission Date: 20120403
  Serious: Yes (Other)
  Sender: FDA-Public Use
  Company Number: TR-PFIZER INC-2011294764

PATIENT
  Age: 3 Year
  Sex: Male

DRUGS (1)
  1. PHENYTOIN SODIUM [Suspect]

REACTIONS (5)
  - EOSINOPHILIA [None]
  - OEDEMA PERIPHERAL [None]
  - HYPOGAMMAGLOBULINAEMIA [None]
  - DRUG HYPERSENSITIVITY [None]
  - URTICARIA [None]
